FAERS Safety Report 17795615 (Version 1)
Quarter: 2020Q2

REPORT INFORMATION
  Report Type: Spontaneous
  Country: US (occurrence: US)
  Receive Date: 20200516
  Receipt Date: 20200516
  Transmission Date: 20200714
  Serious: Yes (Other)
  Sender: FDA-Public Use
  Company Number: US-TEVA-2020-US-1236076

PATIENT
  Sex: Male

DRUGS (1)
  1. RASAGILINE. [Suspect]
     Active Substance: RASAGILINE
     Route: 065

REACTIONS (1)
  - Parkinson^s disease [Unknown]
